FAERS Safety Report 23712276 (Version 1)
Quarter: 2024Q2

REPORT INFORMATION
  Report Type: Report from Study
  Country: US (occurrence: US)
  Receive Date: 20240405
  Receipt Date: 20240405
  Transmission Date: 20240716
  Serious: No
  Sender: FDA-Public Use
  Company Number: US-AGIOS-2403US03712

PATIENT
  Sex: Female

DRUGS (1)
  1. MITAPIVAT [Suspect]
     Active Substance: MITAPIVAT
     Indication: Pyruvate kinase deficiency anaemia
     Dosage: 50 MILLIGRAM, BID
     Route: 048
     Dates: start: 20230721

REACTIONS (6)
  - Arthralgia [Unknown]
  - Back pain [Unknown]
  - Myalgia [Unknown]
  - Pain [Unknown]
  - Full blood count abnormal [Unknown]
  - Asthenia [Unknown]
